FAERS Safety Report 5386389-8 (Version None)
Quarter: 2007Q3

REPORT INFORMATION
  Report Type: 
  Country: None (occurrence: None)
  Receive Date: 20070710
  Receipt Date: 20070710
  Transmission Date: 20080115
  Serious: Yes (Hospitalization)
  Sender: FDA-Public Use
  Company Number: None

PATIENT
  Sex: Female
  Weight: 69.5 kg

DRUGS (2)
  1. CARBOPLATIN [Suspect]
     Dosage: 373 MG
  2. ALIMTA [Suspect]
     Dosage: 895 MG

REACTIONS (4)
  - DYSPEPSIA [None]
  - DYSPHAGIA [None]
  - OESOPHAGITIS [None]
  - VOMITING [None]
